FAERS Safety Report 9802559 (Version 2)
Quarter: 2014Q1

REPORT INFORMATION
  Report Type: Spontaneous
  Country: TR (occurrence: TR)
  Receive Date: 20140108
  Receipt Date: 20140110
  Transmission Date: 20141002
  Serious: Yes (Life-Threatening, Other)
  Sender: FDA-Public Use
  Company Number: TR-AMGEN-TURSP2013091821

PATIENT
  Age: 47 Year
  Sex: Male
  Weight: 82 kg

DRUGS (1)
  1. ENBREL [Suspect]
     Indication: ANKYLOSING SPONDYLITIS
     Dosage: 50 MG, 2 TIMES/WK
     Route: 058
     Dates: start: 2008

REACTIONS (1)
  - Myocardial infarction [Recovered/Resolved with Sequelae]
